FAERS Safety Report 9663735 (Version 3)
Quarter: 2013Q4

REPORT INFORMATION
  Report Type: Report from Study
  Country: US (occurrence: US)
  Receive Date: 20131101
  Receipt Date: 20131126
  Transmission Date: 20140711
  Serious: Yes (Death, Other)
  Sender: FDA-Public Use
  Company Number: PHEH2013US022630

PATIENT
  Age: 67 Year
  Sex: Female

DRUGS (2)
  1. AFINITOR [Suspect]
     Indication: OVARIAN CANCER
     Dosage: UNK
     Dates: start: 201309
  2. AFINITOR [Suspect]
     Indication: OFF LABEL USE

REACTIONS (3)
  - Death [Fatal]
  - Metastases to lung [Unknown]
  - Drug ineffective [Unknown]
